FAERS Safety Report 8779263 (Version 1)
Quarter: 2012Q4

REPORT INFORMATION
  Report Type: Report from Study
  Country: HU (occurrence: HU)
  Receive Date: 20120912
  Receipt Date: 20120912
  Transmission Date: 20130627
  Serious: Yes (Hospitalization, Other)
  Sender: FDA-Public Use
  Company Number: HU-ROCHE-1120852

PATIENT
  Sex: Female

DRUGS (2)
  1. XELODA [Suspect]
     Indication: PRODUCT USED FOR UNKNOWN INDICATION
     Route: 048
     Dates: start: 20080319, end: 200805
  2. FLAVINE ADENINE DINUCLEOTIDE [Concomitant]

REACTIONS (2)
  - Ileus [Recovered/Resolved]
  - Mouth cyst [Unknown]
